FAERS Safety Report 9125403 (Version 2)
Quarter: 2013Q2

REPORT INFORMATION
  Report Type: Spontaneous
  Country: US (occurrence: US)
  Receive Date: 20130121
  Receipt Date: 20130405
  Transmission Date: 20140414
  Serious: Yes (Other)
  Sender: FDA-Public Use
  Company Number: US-NOVOPROD-369048

PATIENT
  Age: 4 Year
  Sex: Female
  Weight: 14.51 kg

DRUGS (2)
  1. NORDITROPIN FLEXPRO 3.3 MG/ML [Suspect]
     Indication: GROWTH HORMONE DEFICIENCY
     Dosage: 0.4 MG, QD
     Route: 058
     Dates: start: 201206
  2. LEVOXYL [Concomitant]
     Indication: PRODUCT USED FOR UNKNOWN INDICATION
     Dosage: 37.5 ?G, QD
     Route: 048

REACTIONS (3)
  - Hypoglycaemic seizure [Recovered/Resolved]
  - Device issue [Unknown]
  - Drug dose omission [Recovered/Resolved]
